FAERS Safety Report 7842802-5 (Version None)
Quarter: 2011Q4

REPORT INFORMATION
  Report Type: 
  Country: None (occurrence: None)
  Receive Date: 20111025
  Receipt Date: 20111012
  Transmission Date: 20120403
  Serious: Yes (Other)
  Sender: FDA-Public Use
  Company Number: US-BAYER-2011-028254

PATIENT
  Age: 17 Year
  Sex: Female
  Weight: 73 kg

DRUGS (8)
  1. PREVACID [Concomitant]
     Indication: GASTROOESOPHAGEAL REFLUX DISEASE
     Dosage: UNK
     Dates: start: 20090101
  2. YAZ [Suspect]
     Indication: PREMENSTRUAL SYNDROME
  3. YAZ [Suspect]
     Indication: MENORRHAGIA
  4. YAZ [Suspect]
     Indication: MENSTRUAL CYCLE MANAGEMENT
     Dosage: UNK
     Dates: start: 20080917, end: 20090130
  5. YAZ [Suspect]
     Indication: DYSMENORRHOEA
  6. ROBINUL [Concomitant]
     Indication: GASTROOESOPHAGEAL REFLUX DISEASE
  7. LOESTRIN 1.5/30 [Concomitant]
  8. ROBINUL [Concomitant]
     Indication: IRRITABLE BOWEL SYNDROME

REACTIONS (8)
  - PAIN [None]
  - DIARRHOEA [None]
  - CHOLELITHIASIS [None]
  - CHOLECYSTITIS CHRONIC [None]
  - GASTROOESOPHAGEAL REFLUX DISEASE [None]
  - INJURY [None]
  - ABDOMINAL PAIN UPPER [None]
  - POST PROCEDURAL DIARRHOEA [None]
